FAERS Safety Report 7236768-9 (Version None)
Quarter: 2011Q1

REPORT INFORMATION
  Report Type: 
  Country: None (occurrence: None)
  Receive Date: 20110120
  Receipt Date: 20101125
  Transmission Date: 20110831
  Serious: Yes (Death)
  Sender: FDA-Public Use
  Company Number: PHHY2010JP31407

PATIENT
  Sex: Female
  Weight: 53 kg

DRUGS (6)
  1. BLOOD TRANSFUSION [Concomitant]
     Indication: MYELODYSPLASTIC SYNDROME
     Dosage: UNK
     Dates: start: 20080925
  2. GLAKAY [Concomitant]
     Indication: MYELODYSPLASTIC SYNDROME
     Dosage: 45 MG, UNK
     Route: 048
     Dates: start: 20080830
  3. RED BLOOD CELLS, CONCENTRATED [Concomitant]
     Dosage: DOSE OF 2 UNITS EVERY 1-2 WEEKS
  4. EXJADE [Suspect]
     Indication: IRON OVERLOAD
     Dosage: 500 MG DAILY
     Route: 048
     Dates: start: 20090908
  5. ALFAROL [Concomitant]
     Indication: MYELODYSPLASTIC SYNDROME
     Dosage: 1 UG, UNK
     Route: 048
     Dates: start: 20080830
  6. EXJADE [Suspect]
     Indication: MYELODYSPLASTIC SYNDROME

REACTIONS (6)
  - PROTEINURIA [None]
  - BLOOD CREATININE INCREASED [None]
  - NEOPLASM MALIGNANT [None]
  - BLOOD LACTATE DEHYDROGENASE INCREASED [None]
  - WHITE BLOOD CELL COUNT INCREASED [None]
  - BLOOD UREA INCREASED [None]
